FAERS Safety Report 6131638-1 (Version None)
Quarter: 2009Q1

REPORT INFORMATION
  Report Type: 
  Country: None (occurrence: None)
  Receive Date: 20090325
  Receipt Date: 20090108
  Transmission Date: 20090719
  Serious: Yes (Other)
  Sender: FDA-Public Use
  Company Number: US-BRISTOL-MYERS SQUIBB COMPANY-14447791

PATIENT
  Age: 51 Year
  Sex: Male
  Weight: 106 kg

DRUGS (4)
  1. ERBITUX [Suspect]
     Indication: COLORECTAL CANCER
     Dosage: LOADING DOSE-900MG,INF STOPPED+RESTARTED ON16DEC08LOWER DOSELOT08C00176AEXPDATE:5/2011RECHALNG-585MG
     Dates: start: 20081209
  2. BENADRYL [Concomitant]
     Indication: PREMEDICATION
  3. SOLU-CORTEF [Concomitant]
     Indication: PREMEDICATION
  4. TAGAMET [Concomitant]
     Indication: PREMEDICATION

REACTIONS (5)
  - ABDOMINAL PAIN [None]
  - BACK PAIN [None]
  - RESPIRATORY RATE INCREASED [None]
  - TACHYCARDIA [None]
  - VOMITING [None]
